FAERS Safety Report 8761241 (Version 1)
Quarter: 2012Q4

REPORT INFORMATION
  Report Type: 
  Country: FR (occurrence: FR)
  Receive Date: 20120830
  Receipt Date: 20120830
  Transmission Date: 20130627
  Serious: Yes (Other)
  Sender: FDA-Public Use
  Company Number: FR-GLAXOSMITHKLINE-B0788558A

PATIENT
  Age: 33 Year
  Sex: Female

DRUGS (1)
  1. SUMATRIPTAN NASAL SPRAY [Suspect]
     Indication: MIGRAINE
     Dosage: 3TAB cumulative dose
     Route: 048
     Dates: start: 2012, end: 2012

REACTIONS (2)
  - Abortion spontaneous [Unknown]
  - Exposure during pregnancy [Unknown]
